FAERS Safety Report 23930460 (Version 1)
Quarter: 2024Q2

REPORT INFORMATION
  Report Type: Report from Study
  Country: US (occurrence: US)
  Receive Date: 20240602
  Receipt Date: 20240602
  Transmission Date: 20240715
  Serious: Yes (Other)
  Sender: FDA-Public Use
  Company Number: US-ABBVIE-5781513

PATIENT
  Sex: Female

DRUGS (3)
  1. HUMIRA [Suspect]
     Active Substance: ADALIMUMAB
     Indication: Product used for unknown indication
     Route: 058
  2. XELJANZ [Suspect]
     Active Substance: TOFACITINIB CITRATE
     Indication: Product used for unknown indication
     Route: 065
  3. BENADRYL [Concomitant]
     Active Substance: DIPHENHYDRAMINE HYDROCHLORIDE
     Indication: Product used for unknown indication
     Dosage: BENADRYL IV

REACTIONS (13)
  - Seizure [Unknown]
  - Nausea [Unknown]
  - Thyroid cancer [Unknown]
  - Drug hypersensitivity [Unknown]
  - Hormone level abnormal [Unknown]
  - Hypoacusis [Unknown]
  - Drug hypersensitivity [Unknown]
  - Fibromyalgia [Unknown]
  - Abdominal discomfort [Unknown]
  - Tremor [Unknown]
  - Malabsorption [Unknown]
  - Fatigue [Unknown]
  - Hypertension [Unknown]
